FAERS Safety Report 12179409 (Version 4)
Quarter: 2016Q2

REPORT INFORMATION
  Report Type: Spontaneous
  Country: IE (occurrence: IE)
  Receive Date: 20160314
  Receipt Date: 20160408
  Transmission Date: 20160815
  Serious: Yes (Hospitalization)
  Sender: FDA-Public Use
  Company Number: IE-009507513-1603IRL005687

PATIENT
  Sex: Female

DRUGS (3)
  1. SODIUM CHLORIDE. [Suspect]
     Active Substance: SODIUM CHLORIDE
     Indication: PRODUCT USED FOR UNKNOWN INDICATION
     Dosage: 100 ML, UNKNOWN
     Route: 042
     Dates: start: 20160222
  2. DAPTOMYCIN. [Suspect]
     Active Substance: DAPTOMYCIN
     Indication: PRODUCT USED FOR UNKNOWN INDICATION
     Dosage: 354 MG, QD
     Route: 042
     Dates: start: 20160222, end: 20160227
  3. MERONEM [Suspect]
     Active Substance: MEROPENEM
     Indication: PRODUCT USED FOR UNKNOWN INDICATION
     Dosage: 1 G, TID
     Route: 042
     Dates: start: 20160222, end: 20160228

REACTIONS (2)
  - Neutropenia [Unknown]
  - Rash [Unknown]

NARRATIVE: CASE EVENT DATE: 20160227
